FAERS Safety Report 17731031 (Version 1)
Quarter: 2020Q2

REPORT INFORMATION
  Report Type: Spontaneous
  Country: US (occurrence: US)
  Receive Date: 20200430
  Receipt Date: 20200430
  Transmission Date: 20200714
  Serious: No
  Sender: FDA-Public Use
  Company Number: US-AMGEN-USASP2020069696

PATIENT
  Age: 72 Year
  Sex: Female

DRUGS (4)
  1. ORENCIA [Concomitant]
     Active Substance: ABATACEPT
     Indication: RHEUMATOID ARTHRITIS
  2. PROLIA [Suspect]
     Active Substance: DENOSUMAB
     Indication: OSTEOPOROSIS POSTMENOPAUSAL
     Dosage: 60 MILLIGRAM
     Route: 065
  3. VIT D [Concomitant]
     Active Substance: VITAMIN D NOS
     Dosage: 2000 MILLIGRAM
  4. CALCIUM CITRATE [Concomitant]
     Active Substance: CALCIUM CITRATE
     Dosage: 400 MILLIGRAM, BID

REACTIONS (6)
  - Oropharyngeal pain [Unknown]
  - Tooth fracture [Unknown]
  - Diarrhoea [Unknown]
  - Dry mouth [Not Recovered/Not Resolved]
  - Dry eye [Not Recovered/Not Resolved]
  - Throat irritation [Unknown]

NARRATIVE: CASE EVENT DATE: 201809
